FAERS Safety Report 18559948 (Version 1)
Quarter: 2020Q4

REPORT INFORMATION
  Report Type: Spontaneous
  Country: ES (occurrence: ES)
  Receive Date: 20201130
  Receipt Date: 20201130
  Transmission Date: 20210114
  Serious: Yes (Hospitalization)
  Sender: FDA-Public Use
  Company Number: NVSC2020ES313284

PATIENT
  Age: 45 Year
  Sex: Male

DRUGS (2)
  1. COSENTYX [Suspect]
     Active Substance: SECUKINUMAB
     Indication: ANKYLOSING SPONDYLITIS
     Dosage: 150 MG, QMO (150 MG / 28 DIAS)
     Route: 058
     Dates: start: 20200423, end: 20200904
  2. HYRIMOZ [Suspect]
     Active Substance: ADALIMUMAB-ADAZ
     Indication: ANKYLOSING SPONDYLITIS
     Dosage: 40 MG (14 DAYS)
     Route: 058
     Dates: start: 20200928

REACTIONS (1)
  - Colitis erosive [Recovering/Resolving]

NARRATIVE: CASE EVENT DATE: 20200911
